FAERS Safety Report 7063948-8 (Version None)
Quarter: 2010Q4

REPORT INFORMATION
  Report Type: 
  Country: None (occurrence: None)
  Receive Date: 20101026
  Receipt Date: 20101001
  Transmission Date: 20110411
  Serious: No
  Sender: FDA-Public Use
  Company Number: US-ABBOTT-10P-163-0675653-00

PATIENT
  Age: 39 Year
  Sex: Female

DRUGS (5)
  1. LUPRON [Suspect]
     Indication: PRODUCT USED FOR UNKNOWN INDICATION
  2. LUPRON [Suspect]
  3. GONAL [Concomitant]
     Indication: PRODUCT USED FOR UNKNOWN INDICATION
  4. MENOPUR [Concomitant]
     Indication: PRODUCT USED FOR UNKNOWN INDICATION
  5. ZOLOFT [Concomitant]
     Indication: PRODUCT USED FOR UNKNOWN INDICATION

REACTIONS (4)
  - AFFECT LABILITY [None]
  - ALOPECIA [None]
  - ANXIETY [None]
  - MOOD SWINGS [None]
